FAERS Safety Report 13627424 (Version 1)
Quarter: 2017Q2

REPORT INFORMATION
  Report Type: Spontaneous
  Country: IT (occurrence: IT)
  Receive Date: 20170608
  Receipt Date: 20170608
  Transmission Date: 20170830
  Serious: Yes (Other)
  Sender: FDA-Public Use
  Company Number: IT-FRESENIUS KABI-FK201704945

PATIENT
  Age: 79 Year
  Sex: Male
  Weight: 65 kg

DRUGS (3)
  1. CARDIOASPIRIN [Concomitant]
     Active Substance: ASPIRIN
     Indication: MYOCARDIAL ISCHAEMIA
     Route: 048
     Dates: start: 20170525, end: 20170529
  2. LASIX [Concomitant]
     Active Substance: FUROSEMIDE
     Indication: HYPERTENSIVE CARDIOMYOPATHY
     Route: 042
     Dates: start: 20170525, end: 20170529
  3. LEVOFLOXACIN KABI (NOT SPECIFIED) (LEVOFLOXACIN) (LEVOFLOXACIN) [Suspect]
     Active Substance: LEVOFLOXACIN
     Indication: PNEUMONIA
     Route: 042
     Dates: start: 20170526, end: 20170526

REACTIONS (3)
  - Urticaria [Recovered/Resolved]
  - Dyspnoea [Recovered/Resolved]
  - Wheezing [Recovered/Resolved]

NARRATIVE: CASE EVENT DATE: 20170526
